FAERS Safety Report 23334862 (Version 1)
Quarter: 2023Q4

REPORT INFORMATION
  Report Type: Spontaneous
  Country: CN (occurrence: CN)
  Receive Date: 20231224
  Receipt Date: 20231224
  Transmission Date: 20240110
  Serious: Yes (Hospitalization, Other)
  Sender: FDA-Public Use
  Company Number: CN-BAXTER-2023BAX038752

PATIENT
  Age: 56 Year
  Sex: Female

DRUGS (1)
  1. LEVOFLOXACIN [Suspect]
     Active Substance: LEVOFLOXACIN
     Dosage: FIRST INFUSION, 4 DAYS AGO
     Route: 042

REACTIONS (24)
  - Epilepsy [Recovered/Resolved]
  - Loss of consciousness [Recovered/Resolved]
  - Unresponsive to stimuli [Unknown]
  - Discomfort [Unknown]
  - Screaming [Unknown]
  - Eye movement disorder [Unknown]
  - Dysstasia [Unknown]
  - Somnolence [Unknown]
  - Muscular weakness [Unknown]
  - Cyanosis [Unknown]
  - Dysarthria [Unknown]
  - Tremor [Unknown]
  - Pyrexia [Unknown]
  - Abdominal pain [Unknown]
  - Cognitive disorder [Recovering/Resolving]
  - Reflexes abnormal [Unknown]
  - Memory impairment [Recovering/Resolving]
  - Loss of personal independence in daily activities [Unknown]
  - Confusional state [Unknown]
  - Depression [Unknown]
  - Speech disorder [Unknown]
  - Gait disturbance [Recovering/Resolving]
  - Nystagmus [Unknown]
  - Dizziness [Unknown]
